FAERS Safety Report 7627267-0 (Version None)
Quarter: 2011Q3

REPORT INFORMATION
  Report Type: 
  Country: None (occurrence: None)
  Receive Date: 20110721
  Receipt Date: 20110712
  Transmission Date: 20111222
  Serious: Yes (Other)
  Sender: FDA-Public Use
  Company Number: PHHY2011US62387

PATIENT
  Sex: Female

DRUGS (10)
  1. TIKOSYN [Concomitant]
     Dosage: UNK UKN, UNK
  2. ZOCOR [Concomitant]
     Dosage: UNK UKN, UNK
  3. CARVEDILOL [Concomitant]
     Dosage: UNK UKN, UNK
  4. LASIX [Concomitant]
     Dosage: UNK UKN, UNK
  5. NIASPAN [Concomitant]
     Dosage: UNK UKN, UNK
  6. VIVELLE-DOT [Suspect]
     Dosage: 0.1 MG, QW2
     Route: 062
     Dates: end: 20110301
  7. COUMADIN [Concomitant]
     Dosage: UNK UKN, UNK
  8. ALLEGRA [Concomitant]
     Dosage: UNK UKN, UNK
  9. POTASSIUM [Concomitant]
     Dosage: UNK UKN, UNK
  10. BUSPAR [Concomitant]
     Indication: ANXIETY
     Dosage: 5 MG IN THE MORNING AND NIGHT

REACTIONS (3)
  - THYROID NEOPLASM [None]
  - HOT FLUSH [None]
  - WEIGHT DECREASED [None]
